FAERS Safety Report 25743065 (Version 1)
Quarter: 2025Q3

REPORT INFORMATION
  Report Type: Spontaneous
  Country: AR (occurrence: AR)
  Receive Date: 20250830
  Receipt Date: 20250830
  Transmission Date: 20251021
  Serious: Yes (Other)
  Sender: ALEXION PHARMACEUTICALS
  Company Number: AR-AstraZeneca-CH-00938664AP

PATIENT
  Sex: Female

DRUGS (7)
  1. BREZTRI [Suspect]
     Active Substance: BUDESONIDE\FORMOTEROL\GLYCOPYRROLATE
     Indication: Chronic obstructive pulmonary disease
     Dosage: 160 MICROGRAM PER INHALATION, Q12H
     Dates: start: 202408
  2. BREZTRI [Suspect]
     Active Substance: BUDESONIDE\FORMOTEROL\GLYCOPYRROLATE
     Indication: Emphysema
  3. ASTRAZENECA COVID-19 VACCINE [Suspect]
     Active Substance: AZD-1222
     Route: 065
  4. ASTRAZENECA COVID-19 VACCINE [Suspect]
     Active Substance: AZD-1222
     Route: 065
  5. ASTRAZENECA COVID-19 VACCINE [Suspect]
     Active Substance: AZD-1222
     Route: 065
  6. BEROTEC [Concomitant]
     Active Substance: FENOTEROL HYDROBROMIDE
     Route: 065
  7. VENTOLIN [Concomitant]
     Active Substance: ALBUTEROL SULFATE
     Route: 065

REACTIONS (6)
  - Drug ineffective [Not Recovered/Not Resolved]
  - COVID-19 [Recovered/Resolved]
  - Device delivery system issue [Unknown]
  - Product use issue [Unknown]
  - Fatigue [Unknown]
  - Hypoxia [Unknown]

NARRATIVE: CASE EVENT DATE: 20220101
